FAERS Safety Report 17832119 (Version 3)
Quarter: 2020Q3

REPORT INFORMATION
  Report Type: Spontaneous
  Country: FR (occurrence: FR)
  Receive Date: 20200527
  Receipt Date: 20200721
  Transmission Date: 20201103
  Serious: Yes (Hospitalization, Other)
  Sender: FDA-Public Use
  Company Number: FR-ASTRAZENECA-2020SE66403

PATIENT
  Age: 40 Year
  Sex: Male

DRUGS (9)
  1. FORXIGA [Suspect]
     Active Substance: DAPAGLIFLOZIN
     Indication: TYPE 2 DIABETES MELLITUS
     Dosage: UNSPECIFIED DOSAGE
     Route: 048
     Dates: start: 20200515, end: 20200518
  2. VICTOZA [Concomitant]
     Active Substance: LIRAGLUTIDE
     Indication: DIABETES MELLITUS
     Dosage: 1.8MG UNKNOWN
     Route: 048
  3. INSULINOTHERAPY [Concomitant]
  4. CLAMOXYL [Concomitant]
  5. CLAMOXYL [Concomitant]
  6. GLIBENESE [Concomitant]
     Indication: DIABETES MELLITUS
     Dosage: 2 GLIBENESE IN THE EVENING
     Route: 048
  7. ANTIDIABETIC [Concomitant]
     Active Substance: UNSPECIFIED INGREDIENT
  8. GLICAZIDE [Concomitant]
     Active Substance: GLICLAZIDE
     Indication: DIABETES MELLITUS
     Dosage: 2 GLICAZIDE IN THE MORNING
     Route: 048
  9. TRESIBA [Concomitant]
     Active Substance: INSULIN DEGLUDEC

REACTIONS (6)
  - Fournier^s gangrene [Recovering/Resolving]
  - Pruritus genital [Unknown]
  - Perineal pain [Unknown]
  - Perineal disorder [Unknown]
  - Inflammation [Unknown]
  - Blood glucose increased [Unknown]

NARRATIVE: CASE EVENT DATE: 20200518
